FAERS Safety Report 6522695-9 (Version None)
Quarter: 2009Q4

REPORT INFORMATION
  Report Type: 
  Country: None (occurrence: None)
  Receive Date: 20091222
  Receipt Date: 20091204
  Transmission Date: 20100525
  Serious: Yes (Hospitalization)
  Sender: FDA-Public Use
  Company Number: DSA_42217_2009

PATIENT
  Age: 61 Year
  Sex: Female

DRUGS (4)
  1. CARDIZEM [Suspect]
     Indication: BLOOD PRESSURE INCREASED
     Dosage: 180 MG QD, ORAL
     Route: 048
     Dates: start: 20090101
  2. SUTENT [Suspect]
     Indication: RENAL CELL CARCINOMA
     Dosage: 50 MG QD,  (37.5 MG; FREQUENCY UNKNOWN0
     Dates: start: 20090901, end: 20090101
  3. SUTENT [Suspect]
     Indication: RENAL CELL CARCINOMA
     Dosage: 50 MG QD,  (37.5 MG; FREQUENCY UNKNOWN0
     Dates: start: 20091116
  4. AVAPRO [Concomitant]

REACTIONS (11)
  - ANAEMIA [None]
  - BLOOD PRESSURE INCREASED [None]
  - DRUG INTERACTION [None]
  - MOUTH ULCERATION [None]
  - MUCOSAL INFLAMMATION [None]
  - NEUTROPENIA [None]
  - PLATELET COUNT DECREASED [None]
  - RASH [None]
  - SEPSIS [None]
  - WHITE BLOOD CELL COUNT DECREASED [None]
  - YELLOW SKIN [None]
